FAERS Safety Report 8254980-7 (Version None)
Quarter: 2012Q2

REPORT INFORMATION
  Report Type: 
  Country: None (occurrence: None)
  Receive Date: 20120403
  Receipt Date: 20120323
  Transmission Date: 20120825
  Serious: Yes (Hospitalization)
  Sender: FDA-Public Use
  Company Number: JP-ACCORD-012202

PATIENT
  Age: 89 Year
  Sex: Male

DRUGS (8)
  1. METFORMIN HCL [Concomitant]
  2. ASPIRIN [Concomitant]
  3. PRAVASTATIN SODIUM [Concomitant]
  4. ALLOPURINOL [Concomitant]
  5. GLIMEPIRIDE [Suspect]
  6. VALSARTAN [Concomitant]
  7. OMERAZOLE [Concomitant]
  8. NAFTOPIDIL [Concomitant]

REACTIONS (3)
  - HEMIPARESIS [None]
  - HYPOGLYCAEMIA [None]
  - DYSARTHRIA [None]
